FAERS Safety Report 4749118-4 (Version None)
Quarter: 2005Q3

REPORT INFORMATION
  Report Type: 
  Country: None (occurrence: None)
  Receive Date: 20050819
  Receipt Date: 20050810
  Transmission Date: 20060218
  Serious: Yes (Hospitalization)
  Sender: FDA-Public Use
  Company Number: JP-ROCHE-414042

PATIENT
  Age: 44 Year
  Sex: Male

DRUGS (3)
  1. PEG-INTERFERON A-2A (RO 25-8310) [Suspect]
     Route: 058
     Dates: start: 20040915
  2. LOXONIN [Concomitant]
     Dosage: ORAL FORMULATION (NOT OTHERWISE SPECIFIED). TAKEN AS NEEDED.
     Route: 048
     Dates: start: 20041124
  3. CATLEP [Concomitant]
     Dosage: DOSE FORM REPORTED AS TAPE. TAKEN AS NEEDED.
     Route: 061
     Dates: start: 20041124

REACTIONS (4)
  - CALCULUS URETERIC [None]
  - NEPHROLITHIASIS [None]
  - TACHYCARDIA [None]
  - VENTRICULAR EXTRASYSTOLES [None]
